FAERS Safety Report 7406651-4 (Version None)
Quarter: 2011Q2

REPORT INFORMATION
  Report Type: 
  Country: None (occurrence: None)
  Receive Date: 20110411
  Receipt Date: 20110401
  Transmission Date: 20111010
  Serious: Yes (Death, Hospitalization, Other)
  Sender: FDA-Public Use
  Company Number: PE-BRISTOL-MYERS SQUIBB COMPANY-15651136

PATIENT
  Age: 70 Year
  Sex: Male

DRUGS (1)
  1. SPRYCEL [Suspect]
     Dosage: DOSE REDUCED TO 50MG BID

REACTIONS (6)
  - SEPSIS [None]
  - PANCYTOPENIA [None]
  - HEPATIC NEOPLASM [None]
  - HAEMATURIA [None]
  - BLADDER NEOPLASM [None]
  - DEATH [None]
